FAERS Safety Report 23320202 (Version 2)
Quarter: 2024Q1

REPORT INFORMATION
  Report Type: Report from Study
  Country: EC (occurrence: EC)
  Receive Date: 20231220
  Receipt Date: 20240123
  Transmission Date: 20240409
  Serious: Yes (Hospitalization)
  Sender: FDA-Public Use
  Company Number: EC-002147023-NVSC2023EC256871

PATIENT
  Age: 51 Year
  Sex: Female

DRUGS (1)
  1. KISQALI [Suspect]
     Active Substance: RIBOCICLIB
     Indication: Breast cancer
     Dosage: 600 MG, QD
     Route: 048
     Dates: start: 20230904

REACTIONS (7)
  - General physical health deterioration [Recovering/Resolving]
  - Food intolerance [Recovering/Resolving]
  - Decreased immune responsiveness [Recovering/Resolving]
  - Hypobarism [Recovering/Resolving]
  - Weight decreased [Not Recovered/Not Resolved]
  - Somnolence [Recovering/Resolving]
  - Nausea [Recovering/Resolving]

NARRATIVE: CASE EVENT DATE: 20230901
